FAERS Safety Report 4627926-8 (Version None)
Quarter: 2005Q2

REPORT INFORMATION
  Report Type: 
  Country: None (occurrence: None)
  Receive Date: 20050404
  Receipt Date: 20050404
  Transmission Date: 20051028
  Serious: Yes (Death)
  Sender: FDA-Public Use
  Company Number: None

PATIENT
  Age: 68 Year
  Sex: Male

DRUGS (1)
  1. COLISTIN [Suspect]
     Indication: PNEUMONIA
     Dosage: 150MG Q8 HOURS INTRAVENOUS
     Route: 042
     Dates: start: 20041016, end: 20041020

REACTIONS (3)
  - MULTI-ORGAN DISORDER [None]
  - RENAL DISORDER [None]
  - SEPSIS [None]
